FAERS Safety Report 16184240 (Version 1)
Quarter: 2019Q2

REPORT INFORMATION
  Report Type: Spontaneous
  Country: US (occurrence: US)
  Receive Date: 20190411
  Receipt Date: 20190411
  Transmission Date: 20190711
  Serious: No
  Sender: FDA-Public Use
  Company Number: US-PFIZER INC-2019152975

PATIENT
  Age: 56 Year

DRUGS (3)
  1. LYRICA [Suspect]
     Active Substance: PREGABALIN
     Dosage: 75 MG, 3X/DAY
  2. FAMOTIDINE. [Suspect]
     Active Substance: FAMOTIDINE
     Dosage: 40 MG, 1X/DAY
  3. BACLOFEN. [Suspect]
     Active Substance: BACLOFEN
     Dosage: 20 MG, 2X/DAY

REACTIONS (1)
  - Drug hypersensitivity [Unknown]
